FAERS Safety Report 18748459 (Version 2)
Quarter: 2021Q1

REPORT INFORMATION
  Report Type: Spontaneous
  Country: US (occurrence: US)
  Receive Date: 20210115
  Receipt Date: 20210314
  Transmission Date: 20210419
  Serious: No
  Sender: FDA-Public Use
  Company Number: US-TEVA-2021-US-1868063

PATIENT
  Age: 7 Decade
  Sex: Female

DRUGS (1)
  1. SULFASALAZINE WATSON [Suspect]
     Active Substance: SULFASALAZINE
     Indication: LICHEN PLANOPILARIS
     Dosage: 3000 MILLIGRAM DAILY;
     Route: 065

REACTIONS (4)
  - Agitation [Not Recovered/Not Resolved]
  - Tremor [Not Recovered/Not Resolved]
  - Off label use [Unknown]
  - Nausea [Not Recovered/Not Resolved]

NARRATIVE: CASE EVENT DATE: 2021
